FAERS Safety Report 18438287 (Version 1)
Quarter: 2020Q4

REPORT INFORMATION
  Report Type: Spontaneous
  Country: US (occurrence: US)
  Receive Date: 20201028
  Receipt Date: 20201028
  Transmission Date: 20210114
  Serious: No
  Sender: FDA-Public Use
  Company Number: US-ROCHE-2578988

PATIENT
  Age: 19 Year
  Sex: Female

DRUGS (2)
  1. COTELLIC [Suspect]
     Active Substance: COBIMETINIB
     Indication: LANGERHANS^ CELL HISTIOCYTOSIS
     Route: 048
     Dates: start: 20200401
  2. COTELLIC [Suspect]
     Active Substance: COBIMETINIB
     Indication: BRAIN NEOPLASM MALIGNANT
     Route: 048
     Dates: start: 20200402

REACTIONS (4)
  - Intentional product use issue [Unknown]
  - Weight decreased [Unknown]
  - Pruritus [Unknown]
  - Off label use [Unknown]

NARRATIVE: CASE EVENT DATE: 20200401
